FAERS Safety Report 6245812-7 (Version None)
Quarter: 2009Q2

REPORT INFORMATION
  Report Type: 
  Country: None (occurrence: None)
  Receive Date: 20090624
  Receipt Date: 20090611
  Transmission Date: 20091009
  Serious: Yes (Other)
  Sender: FDA-Public Use
  Company Number: 234311K09USA

PATIENT
  Age: 57 Year
  Sex: Female

DRUGS (5)
  1. REBIF [Suspect]
     Indication: MULTIPLE SCLEROSIS
     Dosage: 44 MCG, 3 IN 1 WEEKS, SUBCUTANEOUS
     Route: 058
     Dates: start: 20070129
  2. NOVANTRONE [Suspect]
     Indication: MULTIPLE SCLEROSIS
     Dosage: 20 MG 3 IN 1 MONTHS
     Dates: start: 20060101, end: 20080101
  3. TYLENOL [Concomitant]
  4. UNSPECIFIED STEROIDS (CORTICOSTEROIDS) [Concomitant]
  5. B-12 (CYANOCOBALAMIN-TANNIN COMPLEX) [Concomitant]

REACTIONS (5)
  - HAEMATOCRIT ABNORMAL [None]
  - HORMONE LEVEL ABNORMAL [None]
  - RED BLOOD CELL COUNT ABNORMAL [None]
  - RENAL IMPAIRMENT [None]
  - WHITE BLOOD CELL COUNT ABNORMAL [None]
